FAERS Safety Report 18647618 (Version 1)
Quarter: 2020Q4

REPORT INFORMATION
  Report Type: Spontaneous
  Country: US (occurrence: US)
  Receive Date: 20201222
  Receipt Date: 20201222
  Transmission Date: 20210114
  Serious: No
  Sender: FDA-Public Use
  Company Number: US-RECKITT BENCKISER HEALTHCARE INT LIMITED-RB-91446-2019

PATIENT
  Age: 75 Year
  Sex: Female

DRUGS (2)
  1. DELSYM [Suspect]
     Active Substance: DEXTROMETHORPHAN
     Indication: PRODUCT USED FOR UNKNOWN INDICATION
     Dosage: TOOK 10 ML IN THE EVENING
     Route: 065
     Dates: start: 20191014
  2. DELSYM [Suspect]
     Active Substance: DEXTROMETHORPHAN
     Dosage: TOOK 10ML AT 05:00AM
     Route: 065
     Dates: start: 20191015

REACTIONS (1)
  - Diarrhoea [Not Recovered/Not Resolved]

NARRATIVE: CASE EVENT DATE: 20191015
